FAERS Safety Report 24033139 (Version 3)
Quarter: 2025Q3

REPORT INFORMATION
  Report Type: Report from Study
  Country: US (occurrence: US)
  Receive Date: 20240701
  Receipt Date: 20250721
  Transmission Date: 20251021
  Serious: Yes (Hospitalization, Other)
  Sender: CSL BEHRING
  Company Number: US-BEH-2024171815

PATIENT
  Age: 37 Year
  Sex: Male
  Weight: 66.2 kg

DRUGS (5)
  1. HIZENTRA [Suspect]
     Active Substance: HUMAN IMMUNOGLOBULIN G
     Indication: Primary immunodeficiency syndrome
     Dosage: 18 G, QOW
     Route: 058
     Dates: start: 20240322
  2. HIZENTRA [Suspect]
     Active Substance: HUMAN IMMUNOGLOBULIN G
     Indication: Immunodeficiency
     Route: 065
     Dates: start: 202405
  3. HIZENTRA [Suspect]
     Active Substance: HUMAN IMMUNOGLOBULIN G
     Dosage: 18 G, QOW
     Route: 058
     Dates: start: 202403
  4. HIZENTRA [Suspect]
     Active Substance: HUMAN IMMUNOGLOBULIN G
     Route: 065
  5. EPINEPHRINE BITARTRATE [Concomitant]
     Active Substance: EPINEPHRINE BITARTRATE

REACTIONS (29)
  - COVID-19 [Unknown]
  - Bronchitis [Unknown]
  - Blood glucose abnormal [Unknown]
  - Tendonitis [Recovering/Resolving]
  - Trigger finger [Recovering/Resolving]
  - Blood glucose decreased [Recovered/Resolved]
  - Blood glucose abnormal [Recovered/Resolved]
  - Insulinoma [Not Recovered/Not Resolved]
  - Pyrexia [Recovering/Resolving]
  - Headache [Recovering/Resolving]
  - Upper respiratory tract congestion [Recovering/Resolving]
  - Oropharyngeal discomfort [Recovering/Resolving]
  - Nasopharyngitis [Recovering/Resolving]
  - Malaise [Not Recovered/Not Resolved]
  - Dizziness [Not Recovered/Not Resolved]
  - Dizziness [Not Recovered/Not Resolved]
  - Coronavirus infection [Recovering/Resolving]
  - Dizziness [Recovering/Resolving]
  - Dizziness [Recovering/Resolving]
  - Balance disorder [Recovering/Resolving]
  - Gait disturbance [Recovering/Resolving]
  - Impaired driving ability [Recovering/Resolving]
  - Impaired work ability [Recovering/Resolving]
  - Headache [Recovering/Resolving]
  - Nausea [Recovering/Resolving]
  - Infusion site haemorrhage [Recovering/Resolving]
  - Infusion site urticaria [Recovering/Resolving]
  - Blood phosphorus decreased [Unknown]
  - Therapy interrupted [Unknown]

NARRATIVE: CASE EVENT DATE: 20240422
